FAERS Safety Report 5573079-1 (Version None)
Quarter: 2007Q4

REPORT INFORMATION
  Report Type: 
  Country: None (occurrence: None)
  Receive Date: 20071224
  Receipt Date: 20071214
  Transmission Date: 20080405
  Serious: Yes (Hospitalization)
  Sender: FDA-Public Use
  Company Number: DE-ROCHE-536949

PATIENT
  Age: 59 Year
  Sex: Female

DRUGS (7)
  1. CAPECITABINE [Suspect]
     Indication: BREAST CANCER METASTATIC
     Dosage: TAKEN ON DAYS ONE TO FOURTEEN OF EVERY 22-DAYS CYCLE FOR FOUR CYCLES.
     Route: 048
     Dates: start: 20071025, end: 20071108
  2. TAXOL [Suspect]
     Indication: BREAST CANCER METASTATIC
     Dosage: TAKEN ON DAY ONE OF EVERY 8-DAY-CYCLE FOR THREE CYCLES.
     Route: 042
     Dates: start: 20071108, end: 20071108
  3. EPIRUBICIN [Suspect]
     Indication: BREAST CANCER METASTATIC
     Dosage: TAKEN ON DAY ONE OF EVERY 15-DAY-CYCLE FOR THREE CYCLES.
     Route: 042
     Dates: start: 20070718, end: 20070828
  4. CYCLOPHOSPHAMIDE [Suspect]
     Indication: BREAST CANCER METASTATIC
     Dosage: TAKEN ON DAY ONE EVERY 14 DAYS.
     Route: 042
     Dates: start: 20070718, end: 20070828
  5. ARANESP [Concomitant]
     Dosage: TAKEN ON DAY ONE OF FIRST CHEMOTHERAPY CYCLE AND EVERY 14 DAYS THEREAFTER.
     Dates: start: 20070718, end: 20070729
  6. FE [Concomitant]
     Dosage: ROUTE REPORTED AS: GIVEN ON DAY ONE (D1).
     Dates: start: 20070718, end: 20071115
  7. MCP [Concomitant]
     Dates: start: 20071108, end: 20071108

REACTIONS (1)
  - DYSURIA [None]
